FAERS Safety Report 5704151-0 (Version None)
Quarter: 2008Q2

REPORT INFORMATION
  Report Type: 
  Country: None (occurrence: None)
  Receive Date: 20080414
  Receipt Date: 20080414
  Transmission Date: 20081010
  Serious: Yes (Death)
  Sender: FDA-Public Use
  Company Number: None

PATIENT
  Age: 85 Year
  Sex: Female
  Weight: 80.7403 kg

DRUGS (1)
  1. HEPARIN [Suspect]
     Dosage: WITH FLUSH
     Dates: start: 20080109, end: 20080319

REACTIONS (10)
  - ADVERSE DRUG REACTION [None]
  - CARDIAC FAILURE [None]
  - HAEMORRHAGE [None]
  - HYPOTENSION [None]
  - LOSS OF CONSCIOUSNESS [None]
  - OVERDOSE [None]
  - PHARMACEUTICAL PRODUCT COMPLAINT [None]
  - POOR QUALITY DRUG ADMINISTERED [None]
  - PROCEDURAL COMPLICATION [None]
  - SUPERINFECTION [None]
